FAERS Safety Report 7485396-9 (Version None)
Quarter: 2011Q2

REPORT INFORMATION
  Report Type: 
  Country: None (occurrence: None)
  Receive Date: 20110517
  Receipt Date: 20110428
  Transmission Date: 20111010
  Serious: No
  Sender: FDA-Public Use
  Company Number: US-B.I. PHARMACEUTICALS,INC./RIDGEFIELD-2011-BP-05554BP

PATIENT
  Age: 53 Year
  Sex: Female

DRUGS (15)
  1. POTASSIUM [Concomitant]
  2. PRADAXA [Suspect]
     Indication: THROMBOSIS
  3. IRON SUPPLEMENT [Concomitant]
     Indication: ANAEMIA
     Dosage: 325 MG
     Route: 048
  4. ZETIA [Concomitant]
  5. CELEXA [Concomitant]
  6. PAXIL CR [Concomitant]
     Indication: ANXIETY
     Dosage: 37.5 MG
     Route: 048
  7. DEXILANT [Concomitant]
  8. GLUCOPHAGE [Concomitant]
  9. PRADAXA [Suspect]
     Indication: CEREBROVASCULAR ACCIDENT PROPHYLAXIS
     Dosage: 300 MG
     Route: 048
     Dates: start: 20110201
  10. VITAMIN D [Concomitant]
  11. METFORMIN HCL [Concomitant]
     Indication: DIABETES MELLITUS
     Dosage: 1000 MG
     Route: 048
  12. LIPITOR [Concomitant]
     Indication: BLOOD CHOLESTEROL
     Dosage: 40 MG
     Route: 048
  13. MAGNESIUM [Concomitant]
  14. LABETALOL [Concomitant]
     Indication: HEART RATE ABNORMAL
     Dosage: 200 MG
     Route: 048
  15. LASIX [Concomitant]

REACTIONS (3)
  - ABDOMINAL PAIN UPPER [None]
  - GASTROINTESTINAL DISORDER [None]
  - DYSPEPSIA [None]
